FAERS Safety Report 13912444 (Version 4)
Quarter: 2017Q3

REPORT INFORMATION
  Report Type: Spontaneous
  Country: US (occurrence: US)
  Receive Date: 20170828
  Receipt Date: 20170922
  Transmission Date: 20171127
  Serious: Yes (Hospitalization)
  Sender: FDA-Public Use
  Company Number: US-CELGENEUS-USA-20170806200

PATIENT
  Sex: Male
  Weight: 62.2 kg

DRUGS (1)
  1. OTEZLA [Suspect]
     Active Substance: APREMILAST
     Indication: PSORIASIS
     Dosage: 60 MILLIGRAM
     Route: 048
     Dates: start: 201511

REACTIONS (4)
  - Drug effect decreased [Unknown]
  - Cardiac failure [Unknown]
  - Psoriasis [Unknown]
  - Papule [Unknown]
